FAERS Safety Report 24447210 (Version 5)
Quarter: 2024Q4

REPORT INFORMATION
  Report Type: Spontaneous
  Country: US (occurrence: US)
  Receive Date: 20241016
  Receipt Date: 20241216
  Transmission Date: 20250115
  Serious: No
  Sender: SANOFI AVENTIS
  Company Number: US-SA-2024SA296172

PATIENT
  Age: 33 Year
  Sex: Female

DRUGS (18)
  1. DUPIXENT [Suspect]
     Active Substance: DUPILUMAB
     Indication: Dermatitis atopic
     Dosage: 300 MG, QOW
     Route: 058
  2. MIRTAZAPINE [Concomitant]
     Active Substance: MIRTAZAPINE
  3. DOXYCYCLINE [Concomitant]
     Active Substance: DOXYCYCLINE
  4. FENOFIBRATE [Concomitant]
     Active Substance: FENOFIBRATE
  5. DIAZEPAM [Concomitant]
     Active Substance: DIAZEPAM
  6. GABAPENTIN [Concomitant]
     Active Substance: GABAPENTIN
  7. TIZANIDINE HYDROCHLORIDE [Concomitant]
     Active Substance: TIZANIDINE HYDROCHLORIDE
  8. OMEPRAZOLE [Concomitant]
     Active Substance: OMEPRAZOLE
  9. PREDNISONE [Concomitant]
     Active Substance: PREDNISONE
  10. MUPIROCIN [Concomitant]
     Active Substance: MUPIROCIN
  11. TRINTELLIX [Concomitant]
     Active Substance: VORTIOXETINE HYDROBROMIDE
  12. CELECOXIB [Concomitant]
     Active Substance: CELECOXIB
  13. LISINOPRIL [Concomitant]
     Active Substance: LISINOPRIL
  14. IPRATROPIUM [Concomitant]
     Active Substance: IPRATROPIUM
  15. BUPRENORPHINE [Concomitant]
     Active Substance: BUPRENORPHINE
  16. ALBUTEROL SULFATE [Concomitant]
     Active Substance: ALBUTEROL SULFATE
     Dosage: UNK
  17. IPRATROPIUM BROMIDE [Concomitant]
     Active Substance: IPRATROPIUM BROMIDE
     Dosage: UNK
  18. TIZANIDINE [Concomitant]
     Active Substance: TIZANIDINE
     Dosage: UNK

REACTIONS (10)
  - Injection site pain [Not Recovered/Not Resolved]
  - Device issue [Unknown]
  - Skin fissures [Unknown]
  - Skin haemorrhage [Unknown]
  - Blister [Not Recovered/Not Resolved]
  - Dry skin [Unknown]
  - Skin exfoliation [Not Recovered/Not Resolved]
  - Pruritus [Not Recovered/Not Resolved]
  - Arthralgia [Not Recovered/Not Resolved]
  - Therapeutic response shortened [Unknown]

NARRATIVE: CASE EVENT DATE: 20240901
